FAERS Safety Report 12574507 (Version 3)
Quarter: 2016Q4

REPORT INFORMATION
  Report Type: Spontaneous
  Country: JP (occurrence: JP)
  Receive Date: 20160720
  Receipt Date: 20161221
  Transmission Date: 20170207
  Serious: Yes (Life-Threatening, Hospitalization)
  Sender: FDA-Public Use
  Company Number: JP-GLAXOSMITHKLINE-JP2016JPN083124

PATIENT
  Age: 29 Year
  Sex: Female

DRUGS (10)
  1. LAMICTAL [Suspect]
     Active Substance: LAMOTRIGINE
     Indication: BIPOLAR II DISORDER
     Dosage: 25 MG, QD
     Route: 048
     Dates: start: 20160511, end: 20160525
  2. LAMICTAL [Suspect]
     Active Substance: LAMOTRIGINE
     Dosage: 25 MG, BID
     Route: 048
     Dates: start: 20160526, end: 20160606
  3. CINAL [Concomitant]
     Active Substance: ASCORBIC ACID\CALCIUM PANTOTHENATE
     Dosage: 1 DF, TID
  4. BELSOMRA [Concomitant]
     Active Substance: SUVOREXANT
     Dosage: 10 MG, QD
  5. LOXONIN [Concomitant]
     Active Substance: LOXOPROFEN SODIUM
     Dosage: UNK
  6. AMOXAN [Concomitant]
     Active Substance: AMOXAPINE
     Dosage: 25 MG, QD
  7. HALCION [Concomitant]
     Active Substance: TRIAZOLAM
     Dosage: 0.25 MG, QD
  8. MAGLAX [Concomitant]
     Active Substance: MAGNESIUM OXIDE
     Dosage: 300 MG, QD
  9. NEUROTROPIN (EXTRACT FROM CUTANEOUS TISSUE OF RABBIT INOCULATED WITH V [Concomitant]
     Dosage: 2 DF, BID
  10. MYSLEE [Concomitant]
     Active Substance: ZOLPIDEM TARTRATE
     Dosage: 10 MG, QD

REACTIONS (4)
  - Pyrexia [Recovered/Resolved]
  - Skin warm [Recovered/Resolved]
  - Lymphadenopathy [Recovered/Resolved]
  - Rash pruritic [Recovered/Resolved]

NARRATIVE: CASE EVENT DATE: 20160606
